FAERS Safety Report 6107474-9 (Version None)
Quarter: 2009Q1

REPORT INFORMATION
  Report Type: 
  Country: None (occurrence: None)
  Receive Date: 20090303
  Receipt Date: 20090303
  Transmission Date: 20090719
  Serious: Yes (Death, Other)
  Sender: FDA-Public Use
  Company Number: 2008S1018250

PATIENT
  Age: 76 Year
  Sex: Female

DRUGS (5)
  1. CIPROFLOXACIN [Suspect]
     Indication: DEVICE RELATED INFECTION
  2. VANCOMYCIN [Suspect]
     Indication: INFECTION
  3. FUSIDIC ACID [Suspect]
     Indication: INFECTION
  4. MEROPENEM (MEROPENEM) [Suspect]
     Indication: INFECTION
  5. PRISTINAMYCIN (PRISTINAMYCIN) [Suspect]
     Indication: INFECTION

REACTIONS (2)
  - MULTIPLE-DRUG RESISTANCE [None]
  - MYOCARDIAL INFARCTION [None]
